FAERS Safety Report 8085080-7 (Version None)
Quarter: 2012Q1

REPORT INFORMATION
  Report Type: 
  Country: None (occurrence: None)
  Receive Date: 20120128
  Receipt Date: 20110321
  Transmission Date: 20120608
  Serious: No
  Sender: FDA-Public Use
  Company Number: US-ABBOTT-11P-163-0713144-00

PATIENT
  Sex: Female

DRUGS (10)
  1. SINGULAIR [Concomitant]
     Indication: ASTHMA
  2. HUMIRA [Suspect]
     Indication: ANKYLOSING SPONDYLITIS
     Dates: start: 20110101
  3. IMURAN [Concomitant]
     Indication: ARTHRITIS
  4. ZANAFLEX [Concomitant]
     Indication: MYALGIA
  5. ADALAT [Concomitant]
     Indication: PRODUCT USED FOR UNKNOWN INDICATION
  6. NEXIUM [Concomitant]
     Indication: BARRETT'S OESOPHAGUS
  7. LEXAPRO [Concomitant]
     Indication: DEPRESSION
  8. PREDNISONE TAB [Concomitant]
     Indication: ARTHRITIS
  9. SINGULAIR [Concomitant]
     Indication: HYPERSENSITIVITY
  10. LORTAB [Concomitant]
     Indication: PAIN

REACTIONS (4)
  - DRUG ADMINISTRATION ERROR [None]
  - PAIN IN EXTREMITY [None]
  - PAIN [None]
  - ARTHRALGIA [None]
